FAERS Safety Report 17011072 (Version 1)
Quarter: 2019Q4

REPORT INFORMATION
  Report Type: Report from Study
  Country: IT (occurrence: IT)
  Receive Date: 20191108
  Receipt Date: 20191108
  Transmission Date: 20200122
  Serious: Yes (Hospitalization)
  Sender: FDA-Public Use
  Company Number: IT-MYLANLABS-2019M1106697

PATIENT
  Age: 64 Year
  Sex: Female

DRUGS (3)
  1. CARDIRENE [Suspect]
     Active Substance: ASPIRIN DL-LYSINE
     Indication: SUPRAVENTRICULAR TACHYCARDIA
     Dosage: 75 MILLIGRAM, QD
     Route: 048
     Dates: start: 20190315, end: 20190409
  2. BISOPROLOL [Suspect]
     Active Substance: BISOPROLOL
     Indication: SUPRAVENTRICULAR TACHYCARDIA
     Dosage: 1 DOSAGE FORM, QD
     Route: 048
     Dates: start: 20190312, end: 20190409
  3. ALLOPURINOL. [Suspect]
     Active Substance: ALLOPURINOL
     Indication: SUPRAVENTRICULAR TACHYCARDIA
     Dosage: 1 DOSAGE FORM, QD
     Route: 048
     Dates: start: 20190315, end: 20190409

REACTIONS (2)
  - Dermatitis bullous [Recovering/Resolving]
  - Drug eruption [Recovering/Resolving]

NARRATIVE: CASE EVENT DATE: 20190408
